FAERS Safety Report 5845464-1 (Version None)
Quarter: 2008Q3

REPORT INFORMATION
  Report Type: 
  Country: None (occurrence: None)
  Receive Date: 20080731
  Receipt Date: 20080502
  Transmission Date: 20090109
  Serious: No
  Sender: FDA-Public Use
  Company Number: US200805000588

PATIENT
  Age: 52 Year
  Sex: Male

DRUGS (2)
  1. BYETTA [Suspect]
     Indication: TYPE 2 DIABETES MELLITUS
     Dosage: 5 UG, 2/D, SUBCUTANEOUS ; 10 UG, 2/D, SUBCUTANEOUS
     Route: 058
     Dates: start: 20080326, end: 20080426
  2. BYETTA [Suspect]
     Indication: TYPE 2 DIABETES MELLITUS
     Dosage: 5 UG, 2/D, SUBCUTANEOUS ; 10 UG, 2/D, SUBCUTANEOUS
     Route: 058
     Dates: start: 20080427

REACTIONS (10)
  - ABDOMINAL PAIN UPPER [None]
  - BLOOD GLUCOSE DECREASED [None]
  - DECREASED APPETITE [None]
  - DIARRHOEA [None]
  - FATIGUE [None]
  - FEELING COLD [None]
  - GASTROOESOPHAGEAL REFLUX DISEASE [None]
  - INFLUENZA [None]
  - NAUSEA [None]
  - PAIN [None]
